FAERS Safety Report 19592916 (Version 1)
Quarter: 2021Q3

REPORT INFORMATION
  Report Type: Spontaneous
  Country: US (occurrence: US)
  Receive Date: 20210722
  Receipt Date: 20210722
  Transmission Date: 20211014
  Serious: Yes (Hospitalization)
  Sender: FDA-Public Use
  Company Number: None

PATIENT
  Age: 63 Year
  Sex: Female

DRUGS (1)
  1. NUCALA [Suspect]
     Active Substance: MEPOLIZUMAB
     Indication: ASTHMA
     Dosage: ?          OTHER FREQUENCY:EVERY FOUR WEEKS;?
     Route: 058
     Dates: start: 20190220

REACTIONS (7)
  - Wheezing [None]
  - Headache [None]
  - Nausea [None]
  - Joint lock [None]
  - Contusion [None]
  - Pain [None]
  - Cardiac arrest [None]

NARRATIVE: CASE EVENT DATE: 20210603
